FAERS Safety Report 9927528 (Version 1)
Quarter: 2014Q1

REPORT INFORMATION
  Report Type: Report from Study
  Country: DE (occurrence: DE)
  Receive Date: 20140227
  Receipt Date: 20140227
  Transmission Date: 20141002
  Serious: Yes (Hospitalization)
  Sender: FDA-Public Use
  Company Number: DE-ROCHE-1351997

PATIENT
  Age: 53 Year
  Sex: Female

DRUGS (5)
  1. TOCILIZUMAB [Suspect]
     Indication: RHEUMATOID ARTHRITIS
     Route: 065
     Dates: start: 20120216
  2. TOCILIZUMAB [Suspect]
     Route: 065
     Dates: start: 20120510
  3. TOCILIZUMAB [Suspect]
     Route: 065
     Dates: start: 20120806
  4. TOCILIZUMAB [Suspect]
     Route: 065
     Dates: start: 20130219
  5. TOCILIZUMAB [Suspect]
     Route: 065
     Dates: start: 20131004

REACTIONS (1)
  - Cholecystectomy [Recovered/Resolved]
